FAERS Safety Report 10670341 (Version 2)
Quarter: 2015Q1

REPORT INFORMATION
  Report Type: Spontaneous
  Country: US (occurrence: US)
  Receive Date: 20141223
  Receipt Date: 20150310
  Transmission Date: 20150720
  Serious: No
  Sender: FDA-Public Use
  Company Number: US-BIOGENIDEC-2014BI136237

PATIENT
  Sex: Female

DRUGS (2)
  1. TECFIDERA [Suspect]
     Active Substance: DIMETHYL FUMARATE
     Indication: MULTIPLE SCLEROSIS
     Route: 048
     Dates: start: 20140519
  2. PLEGRIDY [Concomitant]
     Active Substance: PEGINTERFERON BETA-1A
     Dates: end: 20150120

REACTIONS (4)
  - Chest pain [Recovered/Resolved]
  - Emphysema [Not Recovered/Not Resolved]
  - Urticaria [Not Recovered/Not Resolved]
  - Hypersensitivity [Recovered/Resolved]
